FAERS Safety Report 4300442-9 (Version None)
Quarter: 2004Q1

REPORT INFORMATION
  Report Type: 
  Country: None (occurrence: None)
  Receive Date: 20040218
  Receipt Date: 20040217
  Transmission Date: 20041129
  Serious: Yes (Hospitalization, Other)
  Sender: FDA-Public Use
  Company Number: HQWYE834405FEB04

PATIENT
  Age: 17 Month
  Sex: Male

DRUGS (1)
  1. CHILDREN'S ADVIL [Suspect]
     Indication: PYREXIA
     Dosage: ORAL
     Route: 048
     Dates: start: 20040112

REACTIONS (8)
  - BLOOD PRESSURE DECREASED [None]
  - EAR CONGESTION [None]
  - INFLAMMATION [None]
  - PHARYNGITIS [None]
  - PYREXIA [None]
  - RASH [None]
  - RHINITIS [None]
  - SWELLING [None]
